FAERS Safety Report 15293177 (Version 1)
Quarter: 2018Q4

REPORT INFORMATION
  Report Type: Report from Study
  Country: CA (occurrence: CA)
  Receive Date: 20180820
  Receipt Date: 20180820
  Transmission Date: 20190204
  Serious: Yes (Other)
  Sender: FDA-Public Use
  Company Number: CA-SUN PHARMACEUTICAL INDUSTRIES LTD-2018US-175958

PATIENT
  Sex: Male

DRUGS (5)
  1. TESTOSTERONE INJECTIONS DELATESTRYL [Concomitant]
     Indication: BLOOD TESTOSTERONE DECREASED
     Dosage: 5 ML, 1/WEEK
     Route: 030
     Dates: start: 20170519
  2. MK-3222 INJECTION [Suspect]
     Active Substance: TILDRAKIZUMAB
     Indication: PSORIASIS
     Dosage: UNK
     Route: 058
     Dates: start: 20160718
  3. ALLOPURINOL. [Concomitant]
     Active Substance: ALLOPURINOL
     Indication: GOUT
     Dosage: 100 MG, QD
     Route: 048
     Dates: start: 20170731
  4. VIMOVO [Concomitant]
     Active Substance: ESOMEPRAZOLE MAGNESIUM\NAPROXEN
     Indication: GOUT
     Dosage: 1 DF, QD
     Route: 048
     Dates: start: 20151208
  5. HYDROCORTISONE CREAM [Concomitant]
     Active Substance: HYDROCORTISONE
     Indication: PSORIASIS
     Dosage: UNK, PRN
     Route: 061
     Dates: start: 20161011

REACTIONS (1)
  - Malignant melanoma in situ [Recovered/Resolved]

NARRATIVE: CASE EVENT DATE: 20180301
